FAERS Safety Report 9265779 (Version 14)
Quarter: 2016Q1

REPORT INFORMATION
  Report Type: Spontaneous
  Country: US (occurrence: US)
  Receive Date: 20130501
  Receipt Date: 20160331
  Transmission Date: 20160526
  Serious: Yes (Hospitalization, Other)
  Sender: FDA-Public Use
  Company Number: US-GLAXOSMITHKLINE-A1014805A

PATIENT
  Age: 39 Year
  Sex: Female
  Weight: 65 kg

DRUGS (14)
  1. FLOLAN [Suspect]
     Active Substance: EPOPROSTENOL SODIUM
     Dosage: UNK, Z
  2. FLOLAN [Suspect]
     Active Substance: EPOPROSTENOL SODIUM
     Dosage: 16 DF, UNK
     Route: 042
  3. FLOLAN [Suspect]
     Active Substance: EPOPROSTENOL SODIUM
     Dosage: 18 NG/KG/MIN CONTINUOUSLY
     Route: 042
     Dates: start: 20130118
  4. REVATIO [Concomitant]
     Active Substance: SILDENAFIL CITRATE
  5. COUMADIN [Concomitant]
     Active Substance: WARFARIN SODIUM
  6. FLOLAN [Suspect]
     Active Substance: EPOPROSTENOL SODIUM
     Dosage: UNK
     Dates: start: 20130118
  7. TRACLEER [Concomitant]
     Active Substance: BOSENTAN
  8. FLOLAN [Suspect]
     Active Substance: EPOPROSTENOL SODIUM
     Dosage: UNK
     Dates: start: 20130118
  9. SILDENAFIL CITRATE. [Concomitant]
     Active Substance: SILDENAFIL CITRATE
  10. FLOLAN [Suspect]
     Active Substance: EPOPROSTENOL SODIUM
     Dosage: UNK
     Dates: start: 20130118
  11. FLOLAN [Suspect]
     Active Substance: EPOPROSTENOL SODIUM
     Dosage: UNK
     Dates: start: 20130118
  12. FLOLAN [Suspect]
     Active Substance: EPOPROSTENOL SODIUM
     Indication: PULMONARY ARTERIAL HYPERTENSION
     Dosage: 5 NG/KG/MIN9 NG/KG/MIN, CONCENTRATION 15,000 NG/ML, 1.5 MG VIAL STRENGTH8.5 NG/MG/MIN, CONCENTR[...]
     Route: 042
     Dates: start: 20130118
  13. FLOLAN [Suspect]
     Active Substance: EPOPROSTENOL SODIUM
     Dosage: UNK
     Dates: start: 20130118
  14. FLOLAN [Suspect]
     Active Substance: EPOPROSTENOL SODIUM
     Dosage: 18 NG/KG/MIN CONTINUOUSLY
     Route: 042
     Dates: start: 20130118

REACTIONS (17)
  - Device breakage [Unknown]
  - Catheter removal [Unknown]
  - Central venous catheterisation [Recovered/Resolved]
  - Catheter site related reaction [Unknown]
  - Asthenia [Unknown]
  - Pneumonia [Unknown]
  - Application site papules [Recovered/Resolved]
  - Device related infection [Unknown]
  - Catheter site erythema [Recovered/Resolved]
  - Catheter site pruritus [Recovered/Resolved]
  - Dermatitis contact [Recovered/Resolved]
  - Sepsis [Unknown]
  - Right ventricular failure [Unknown]
  - Influenza [Unknown]
  - Complication associated with device [Unknown]
  - Application site reaction [Recovered/Resolved]
  - Multiple allergies [Recovered/Resolved]

NARRATIVE: CASE EVENT DATE: 201304
